FAERS Safety Report 13735126 (Version 2)
Quarter: 2017Q3

REPORT INFORMATION
  Report Type: Spontaneous
  Country: US (occurrence: US)
  Receive Date: 20170710
  Receipt Date: 20170719
  Transmission Date: 20171127
  Serious: Yes (Life-Threatening, Hospitalization, Other)
  Sender: FDA-Public Use
  Company Number: US-JNJFOC-20170703988

PATIENT
  Age: 3 Decade
  Sex: Female

DRUGS (5)
  1. FLUVOXAMINE [Suspect]
     Active Substance: FLUVOXAMINE
     Indication: OBSESSIVE-COMPULSIVE DISORDER
     Route: 065
  2. LOPERAMIDE HYDROCHLORIDE. [Suspect]
     Active Substance: LOPERAMIDE HYDROCHLORIDE
     Route: 065
  3. LORAZEPAM. [Suspect]
     Active Substance: LORAZEPAM
     Indication: ANXIETY
     Route: 065
  4. LISDEXAMFETAMINE [Suspect]
     Active Substance: LISDEXAMFETAMINE
     Indication: NARCOLEPSY
     Route: 065
  5. LOPERAMIDE HYDROCHLORIDE. [Suspect]
     Active Substance: LOPERAMIDE HYDROCHLORIDE
     Indication: PROPHYLAXIS
     Dosage: 200-400 MG
     Route: 065

REACTIONS (11)
  - Piloerection [Recovering/Resolving]
  - Myalgia [Recovering/Resolving]
  - Torsade de pointes [Recovering/Resolving]
  - Rhinorrhoea [Recovering/Resolving]
  - Irritability [Recovering/Resolving]
  - Mydriasis [Recovering/Resolving]
  - Drug abuse [Recovering/Resolving]
  - Abdominal pain [Recovering/Resolving]
  - Drug withdrawal syndrome [Recovering/Resolving]
  - Anxiety [Recovering/Resolving]
  - Yawning [Recovering/Resolving]
